FAERS Safety Report 5049248-6 (Version None)
Quarter: 2006Q3

REPORT INFORMATION
  Report Type: 
  Country: None (occurrence: None)
  Receive Date: 20060707
  Receipt Date: 20060622
  Transmission Date: 20061208
  Serious: No
  Sender: FDA-Public Use
  Company Number: TPA2006A01032

PATIENT
  Age: 39 Year
  Sex: Female
  Weight: 97.5234 kg

DRUGS (2)
  1. ROZEREM [Suspect]
     Indication: INSOMNIA
     Dosage: 8 MG, QHS, PER ORAL
     Route: 048
     Dates: start: 20060622
  2. YASMIN [Suspect]
     Indication: CONTRACEPTION
     Dosage: 1 IN 1 D, PER ORAL
     Route: 048

REACTIONS (1)
  - ACCIDENTAL EXPOSURE [None]
